FAERS Safety Report 15231030 (Version 1)
Quarter: 2018Q3

REPORT INFORMATION
  Report Type: Spontaneous
  Country: US (occurrence: US)
  Receive Date: 20180802
  Receipt Date: 20180802
  Transmission Date: 20181010
  Serious: Yes (Other)
  Sender: FDA-Public Use
  Company Number: US-ACCORD-064216

PATIENT
  Age: 60 Year
  Sex: Female

DRUGS (15)
  1. PROMETHAZINE [Concomitant]
     Active Substance: PROMETHAZINE\PROMETHAZINE HYDROCHLORIDE
     Indication: NAUSEA
     Dosage: STRENGTH: 25 MG?1 TABLET Q 4?6 HRS PRN
  2. DOCETAXEL ACCORD [Suspect]
     Active Substance: DOCETAXEL
     Indication: BREAST CANCER
     Dates: start: 201508, end: 20151205
  3. GABAPENTIN. [Concomitant]
     Active Substance: GABAPENTIN
     Dosage: STRENGTH: 300 MG?ONE PO Q HS X 3 DAYS THEN ONE PO BID THEREAFTER
     Route: 048
  4. LISINOPRIL. [Concomitant]
     Active Substance: LISINOPRIL
  5. CARVEDILOL/CARVEDILOL HYDROCHLODRIDE [Concomitant]
  6. LIDOCAINE/PRILOCAINE [Concomitant]
     Dosage: STRENGTH: 2.5?2.5%?APPLY SMALL AMOUNT TO PORT SITE THEN COVER AREA 30 MIN PRIOR TO CHEMOTHERAPY
  7. DULOXETINE. [Concomitant]
     Active Substance: DULOXETINE
  8. NORCO [Concomitant]
     Active Substance: ACETAMINOPHEN\HYDROCODONE BITARTRATE
     Indication: PAIN
     Dosage: STRENGTH: 7.5?325 MG?ONE TAB PO Q 4?6 HOURS AS NEEDED
     Route: 048
  9. KEFLEX [Concomitant]
     Active Substance: CEPHALEXIN
     Dosage: STRENGTH: 500 MG?1 CAP PO 3 TIMES A DAY
     Route: 048
  10. HYDROCHLOROTHIAZIDE. [Concomitant]
     Active Substance: HYDROCHLOROTHIAZIDE
     Dosage: STRENGTH: 25 MG
     Route: 048
  11. ONDANSETRON [Concomitant]
     Active Substance: ONDANSETRON
     Indication: NAUSEA
     Dosage: STRENGTH: 4 MG
     Route: 048
  12. KLOR?CON M20 [Concomitant]
     Active Substance: POTASSIUM CHLORIDE
     Dosage: STRENGTH: 20 MEQ?1 TAB PO DAILY
     Route: 048
  13. HYDROCODONE [Concomitant]
     Active Substance: HYDROCODONE
  14. LETROZOLE. [Concomitant]
     Active Substance: LETROZOLE
  15. FLONASE [Concomitant]
     Active Substance: FLUTICASONE PROPIONATE
     Indication: HYPERSENSITIVITY
     Dosage: STRENGTH: 50 MCG/ACT?1 SPRAY EACH NOSTRIL DAILY

REACTIONS (1)
  - Alopecia [Not Recovered/Not Resolved]

NARRATIVE: CASE EVENT DATE: 201606
